FAERS Safety Report 18944215 (Version 4)
Quarter: 2022Q1

REPORT INFORMATION
  Report Type: Other
  Country: JP (occurrence: JP)
  Receive Date: 20210226
  Receipt Date: 20220304
  Transmission Date: 20220423
  Serious: Yes (Other)
  Sender: FDA-Public Use
  Company Number: JP-CHUGAI-A2021007076ROCHE

PATIENT
  Age: 72 Year
  Sex: Male
  Weight: 80 kg

DRUGS (2)
  1. ENTRECTINIB [Suspect]
     Active Substance: ENTRECTINIB
     Indication: Gastric cancer
     Route: 048
     Dates: start: 20201006, end: 20201027
  2. ENTRECTINIB [Suspect]
     Active Substance: ENTRECTINIB
     Dosage: ON 22/DEC/2020, MOST RECENT DOSE
     Route: 048
     Dates: start: 20201111

REACTIONS (3)
  - Cardiac failure [Recovered/Resolved]
  - Metastases to central nervous system [Unknown]
  - Peripheral sensory neuropathy [Unknown]

NARRATIVE: CASE EVENT DATE: 20201015
